FAERS Safety Report 5444491-6 (Version None)
Quarter: 2007Q3

REPORT INFORMATION
  Report Type: 
  Country: None (occurrence: None)
  Receive Date: 20070830
  Receipt Date: 20070822
  Transmission Date: 20080115
  Serious: Yes (Hospitalization, Other)
  Sender: FDA-Public Use
  Company Number: 2007323735

PATIENT
  Age: 12 Year
  Sex: Male
  Weight: 53.5244 kg

DRUGS (2)
  1. LISTERINE AGENT COOL BLUE BUBBLE BLAST (NO ACTIVE INGREDIENT) [Suspect]
     Indication: DENTAL PLAQUE
     Dosage: RECOMMENDED AMOUNT ONCE DAILY (1 IN 1), ORAL TOPICAL
     Route: 048
     Dates: end: 20070401
  2. DRUG UNSPECIFIED, (DRUG UNSPECIFIED) [Concomitant]

REACTIONS (6)
  - BLISTER [None]
  - CONDITION AGGRAVATED [None]
  - DIABETIC KETOACIDOSIS [None]
  - MALAISE [None]
  - PHARYNGITIS STREPTOCOCCAL [None]
  - THROAT LESION [None]
